FAERS Safety Report 18723923 (Version 1)
Quarter: 2021Q1

REPORT INFORMATION
  Report Type: Other
  Country: US (occurrence: US)
  Receive Date: 20210111
  Receipt Date: 20210111
  Transmission Date: 20210419
  Serious: Yes (Hospitalization, Other)
  Sender: FDA-Public Use
  Company Number: US-DEXPHARM-20201200

PATIENT
  Age: 32 Year
  Sex: Male

DRUGS (1)
  1. OMEPRAZOLE. [Suspect]
     Active Substance: OMEPRAZOLE
     Indication: GASTROOESOPHAGEAL REFLUX DISEASE

REACTIONS (5)
  - Veillonella infection [Recovered/Resolved]
  - Incorrect product administration duration [Recovered/Resolved]
  - Blood creatinine increased [Recovered/Resolved]
  - Bacterial infection [Recovered/Resolved]
  - Liver abscess [Recovered/Resolved]
